FAERS Safety Report 14547579 (Version 1)
Quarter: 2018Q1

REPORT INFORMATION
  Report Type: Spontaneous
  Country: FI (occurrence: FI)
  Receive Date: 20180219
  Receipt Date: 20180219
  Transmission Date: 20180509
  Serious: Yes (Hospitalization, Other)
  Sender: FDA-Public Use
  Company Number: FI-MYLANLABS-2018M1010556

PATIENT
  Age: 61 Year
  Sex: Female

DRUGS (8)
  1. METRONIDAZOLE. [Suspect]
     Active Substance: METRONIDAZOLE
     Indication: SEPSIS
     Dosage: 500MG X 3/DAY
     Route: 042
  2. CEFUROXIME. [Suspect]
     Active Substance: CEFUROXIME
     Indication: SEPSIS
     Dosage: 1.5 G X 3/DAY
     Route: 042
  3. T4 [Concomitant]
     Active Substance: LEVOTHYROXINE
     Dosage: GRADUALLY REDUCED
     Route: 042
  4. T4 [Concomitant]
     Active Substance: LEVOTHYROXINE
     Dosage: THEN CONTINUED 100 MICROG
     Route: 042
  5. T4 [Concomitant]
     Active Substance: LEVOTHYROXINE
     Indication: MYXOEDEMA
     Dosage: 500 MICROG INITIALLY
     Route: 042
  6. TRIIODOTHYRONINE [Concomitant]
     Active Substance: LIOTHYRONINE SODIUM
     Indication: MYXOEDEMA
     Dosage: 5 MICROG X 3/DAY
     Route: 042
  7. PIPERACILLIN/TAZOBACTAM [Suspect]
     Active Substance: PIPERACILLIN SODIUM\TAZOBACTAM SODIUM
     Indication: SEPSIS
     Dosage: INITIATED AT 4G X 3/DAY, THE TREATMENT WAS TEMPORARILY DISCONTINUED, AND LATER RESTARTED AT THE S...
     Route: 042
  8. T4 [Concomitant]
     Active Substance: LEVOTHYROXINE
     Indication: MYXOEDEMA
     Dosage: UNK
     Route: 048

REACTIONS (1)
  - Clostridium difficile infection [Recovered/Resolved]
